FAERS Safety Report 26028818 (Version 1)
Quarter: 2025Q4

REPORT INFORMATION
  Report Type: Spontaneous
  Country: EU (occurrence: EU)
  Receive Date: 20251112
  Receipt Date: 20251112
  Transmission Date: 20260118
  Serious: Yes (Hospitalization, Other)
  Sender: BAXTER
  Company Number: EU-ROCHE-10000273445

PATIENT
  Age: 61 Year
  Sex: Female
  Weight: 55.9 kg

DRUGS (13)
  1. CYCLOPHOSPHAMIDE [Suspect]
     Active Substance: CYCLOPHOSPHAMIDE
     Indication: Triple negative breast cancer
     Dosage: UNK(ON 08-JAN-2025, SHE RECEIVED HER MOST RECENT DOSE OF CYCLOPHOSPHAMIDE 600 MG/M2 PRIOR TO AE.CYCL
     Route: 042
     Dates: start: 20241107
  2. DOXORUBICIN [Suspect]
     Active Substance: DOXORUBICIN
     Indication: Triple negative breast cancer
     Dosage: UNK (ON 08-JAN-2025, SHE RECEIVED HER MOST RECENT DOSE OF DOXORUBICIN 60 MG/M2 PRIOR TO AE. CUMULATI
     Route: 042
     Dates: start: 20241107
  3. ATEZOLIZUMAB [Suspect]
     Active Substance: ATEZOLIZUMAB
     Indication: Triple negative breast cancer
     Dosage: UNK (ON 23-APR-2025, SHE RECEIVED HER MOST RECENT DOSE OF ATEZOLIZUMAB 1200 MG PRIOR TO AE. CYCLE 3
     Route: 042
     Dates: start: 20240729
  4. TIRAGOLUMAB [Suspect]
     Active Substance: TIRAGOLUMAB
     Indication: Triple negative breast cancer
     Dosage: UNK (ON 23-APR-2025, SHE RECEIVED HER MOST RECENT DOSE OF TIRAGOLIMAB 600 MG PRIOR TO AE.LAST CYCLE
     Route: 042
     Dates: start: 20240729
  5. CAPECITABINE [Suspect]
     Active Substance: CAPECITABINE
     Indication: Triple negative breast cancer
     Dosage: 2000 MG (25-APR-2025: LAST DOSE RECEIVED 2000 MG)
     Route: 048
     Dates: start: 20250318
  6. CAPECITABINE [Suspect]
     Active Substance: CAPECITABINE
     Dosage: 1300 MG (1300 MG 5/7 DAYS DURING RADIOTHERAPY: SUSPENDED)
     Route: 048
  7. PACLITAXEL [Suspect]
     Active Substance: PACLITAXEL
     Indication: Triple negative breast cancer
     Dosage: UNK (ON 23-OCT-2024, SHE RECEIVED HER MOST RECENT DOSE OF NAB PACLITAXEL 170 MG PRIOR TO AE.CUMULATI
     Route: 042
     Dates: start: 20240729
  8. CARBOPLATIN [Suspect]
     Active Substance: CARBOPLATIN
     Indication: Triple negative breast cancer
     Dosage: UNK (ON 08-OCT-2024, SHE RECEIVED HER MOST RECENT DOSE OF  CARBOPLATINE 450 MG PRIOR TO AE.CUMULATIV
     Route: 042
     Dates: start: 20240729
  9. LEVOTHYROXINE [Concomitant]
     Active Substance: LEVOTHYROXINE
     Indication: Thyroidectomy
     Dosage: 75 UG
     Route: 048
     Dates: end: 20241204
  10. LEVOTHYROXINE [Concomitant]
     Active Substance: LEVOTHYROXINE
     Dosage: 100 UG
     Route: 048
     Dates: start: 20241204
  11. ATORVASTATIN [Concomitant]
     Active Substance: ATORVASTATIN
     Dosage: 20 MG
     Route: 048
     Dates: start: 202311
  12. ZOLPIDEM [Concomitant]
     Active Substance: ZOLPIDEM TARTRATE
     Dosage: 10 MG
     Route: 048
     Dates: start: 202406
  13. Sorbiline [Concomitant]
     Dosage: UNK
     Route: 065
     Dates: start: 202401

REACTIONS (1)
  - Colitis [Recovered/Resolved]

NARRATIVE: CASE EVENT DATE: 20250425
